FAERS Safety Report 4884216-6 (Version None)
Quarter: 2005Q4

REPORT INFORMATION
  Report Type: 
  Country: None (occurrence: None)
  Receive Date: 20051201
  Receipt Date: 20050902
  Transmission Date: 20060501
  Serious: No
  Sender: FDA-Public Use
  Company Number: 2005PV001819

PATIENT
  Age: 52 Year
  Sex: Female
  Weight: 114.76 kg

DRUGS (3)
  1. BYETTA [Suspect]
     Indication: DIABETES MELLITUS
     Dosage: 5 MCG;BID;SC
     Route: 058
     Dates: start: 20050901
  2. LANTUS [Concomitant]
  3. AMARYL [Concomitant]

REACTIONS (3)
  - BLOOD GLUCOSE DECREASED [None]
  - FLATULENCE [None]
  - NAUSEA [None]
